FAERS Safety Report 15036032 (Version 3)
Quarter: 2025Q1

REPORT INFORMATION
  Report Type: Report from Study
  Country: DE (occurrence: DE)
  Receive Date: 20180620
  Receipt Date: 20250312
  Transmission Date: 20250409
  Serious: Yes (Other)
  Sender: AMGEN
  Company Number: DE-AMGEN-DEUNI2018082913

PATIENT
  Age: 80 Year
  Sex: Male
  Weight: 72 kg

DRUGS (12)
  1. CARFILZOMIB [Suspect]
     Active Substance: CARFILZOMIB
     Indication: Plasma cell myeloma
     Route: 040
     Dates: start: 20180314, end: 20180315
  2. CARFILZOMIB [Suspect]
     Active Substance: CARFILZOMIB
     Route: 040
     Dates: start: 20180321, end: 20180426
  3. CARFILZOMIB [Suspect]
     Active Substance: CARFILZOMIB
     Route: 040
     Dates: start: 20180503
  4. DEXAMETHASONE [Suspect]
     Active Substance: DEXAMETHASONE
     Indication: Plasma cell myeloma
     Route: 065
     Dates: start: 20180314
  5. ZOLEDRONIC ACID [Concomitant]
     Active Substance: ZOLEDRONIC ACID
     Indication: Prophylaxis
     Dosage: 4 MG, QMO
     Dates: start: 20170803
  6. ACYCLOVIR [Concomitant]
     Active Substance: ACYCLOVIR
     Indication: Prophylaxis
     Dosage: 200 MG, BID
     Dates: start: 20180314
  7. Atorvastatin Aaa [Concomitant]
     Indication: Coronary artery disease
     Dosage: 40 MG, QD
     Dates: start: 20180312
  8. TORSEMIDE [Concomitant]
     Active Substance: TORSEMIDE
     Indication: Essential hypertension
     Dosage: 10 MG, QD
     Dates: start: 20180312
  9. AMINOPHYLLINE\QUININE SULFATE [Concomitant]
     Active Substance: AMINOPHYLLINE\QUININE SULFATE
     Indication: Muscle spasms
     Dosage: 200 MG, QD
     Dates: start: 20180312
  10. Bisoprolol ratiopharm [Concomitant]
     Indication: Essential hypertension
     Dosage: 25 MG, QD
     Dates: start: 20180312
  11. ALLOPURINOL [Concomitant]
     Active Substance: ALLOPURINOL
     Indication: Hyperuricaemia
     Dosage: 300 MG, QD
     Dates: start: 20180312
  12. ASPIRIN [Concomitant]
     Active Substance: ASPIRIN
     Indication: Prophylaxis
     Dosage: 100 MILLIGRAM, QD
     Dates: start: 20180312

REACTIONS (1)
  - Autoimmune haemolytic anaemia [Recovered/Resolved]

NARRATIVE: CASE EVENT DATE: 20180606
